FAERS Safety Report 6919579-0 (Version None)
Quarter: 2010Q3

REPORT INFORMATION
  Report Type: 
  Country: None (occurrence: None)
  Receive Date: 20100809
  Receipt Date: 20100729
  Transmission Date: 20110219
  Serious: Yes (Disabling)
  Sender: FDA-Public Use
  Company Number: 2009JP006352

PATIENT
  Age: 58 Year
  Sex: Female
  Weight: 44.8 kg

DRUGS (17)
  1. TACROLIMUS [Suspect]
     Indication: LUPUS NEPHRITIS
     Dosage: 1 MG, /D, ORAL; 2 MG, /D, ORAL; 1 MG, /D, ORAL
     Route: 048
     Dates: start: 20090702, end: 20090812
  2. PREDNISOLONE [Suspect]
     Indication: LUPUS NEPHRITIS
     Dosage: SEE IMAGE
     Route: 048
     Dates: start: 20090702, end: 20090715
  3. PREDNISOLONE [Suspect]
     Indication: LUPUS NEPHRITIS
     Dosage: SEE IMAGE
     Route: 048
     Dates: start: 20090716, end: 20090729
  4. PREDNISOLONE [Suspect]
     Indication: LUPUS NEPHRITIS
     Dosage: SEE IMAGE
     Route: 048
     Dates: start: 20090702, end: 20090812
  5. PREDNISOLONE [Suspect]
     Indication: LUPUS NEPHRITIS
     Dosage: SEE IMAGE
     Route: 048
     Dates: start: 20090730, end: 20090812
  6. PREDNISOLONE [Suspect]
     Indication: LUPUS NEPHRITIS
     Dosage: SEE IMAGE
     Route: 048
     Dates: start: 20090813, end: 20090923
  7. PREDNISOLONE [Suspect]
     Indication: LUPUS NEPHRITIS
     Dosage: SEE IMAGE
     Route: 048
     Dates: start: 20090924, end: 20091021
  8. PREDNISOLONE [Suspect]
     Indication: LUPUS NEPHRITIS
     Dosage: SEE IMAGE
     Route: 048
     Dates: start: 20091022, end: 20100127
  9. PREDNISOLONE [Suspect]
     Indication: LUPUS NEPHRITIS
     Dosage: SEE IMAGE
     Route: 048
     Dates: start: 20100128, end: 20100520
  10. PREDNISOLONE [Suspect]
     Indication: LUPUS NEPHRITIS
     Dosage: SEE IMAGE
     Route: 048
     Dates: start: 20100521
  11. ISOCLINE(CLOTIAZEPAM) [Concomitant]
  12. MUCOSA (REBAMIPIDE) [Concomitant]
  13. DIOVAN [Concomitant]
  14. ACTONEL [Concomitant]
  15. VOGLIBOSE (VOGLIBOSE) [Concomitant]
  16. GLUFAST (MITIGLINE CALCIUM) [Concomitant]
  17. AMLODIPINE BESYLATE [Concomitant]

REACTIONS (2)
  - CHORIORETINOPATHY [None]
  - RENAL DISORDER [None]
